FAERS Safety Report 21622543 (Version 2)
Quarter: 2022Q4

REPORT INFORMATION
  Report Type: Spontaneous
  Country: US (occurrence: US)
  Receive Date: 20221121
  Receipt Date: 20221122
  Transmission Date: 20230112
  Serious: Yes (Death, Other)
  Sender: FDA-Public Use
  Company Number: US-GLAXOSMITHKLINE-US2022171966

PATIENT

DRUGS (1)
  1. ZEJULA [Suspect]
     Active Substance: NIRAPARIB
     Indication: Ovarian cancer
     Dosage: UNK

REACTIONS (5)
  - Cardiac disorder [Fatal]
  - Thrombosis [Fatal]
  - Brain neoplasm malignant [Unknown]
  - Depressed level of consciousness [Unknown]
  - Fall [Unknown]
